FAERS Safety Report 7270940-7 (Version None)
Quarter: 2011Q1

REPORT INFORMATION
  Report Type: 
  Country: None (occurrence: None)
  Receive Date: 20110202
  Receipt Date: 20110119
  Transmission Date: 20110831
  Serious: Yes (Disabling, Other)
  Sender: FDA-Public Use
  Company Number: FR-CELGENEUS-056-50794-10101662

PATIENT
  Age: 71 Year
  Sex: Male

DRUGS (4)
  1. VIDAZA [Suspect]
     Route: 065
     Dates: start: 20090701, end: 20100201
  2. EXJADE [Concomitant]
     Route: 065
  3. PLATELETS [Concomitant]
     Route: 051
  4. RED BLOOD CELLS [Concomitant]
     Route: 051

REACTIONS (2)
  - CHRONIC MYELOMONOCYTIC LEUKAEMIA [None]
  - ACUTE MYELOID LEUKAEMIA [None]
